FAERS Safety Report 6124693-6 (Version None)
Quarter: 2009Q1

REPORT INFORMATION
  Report Type: 
  Country: None (occurrence: None)
  Receive Date: 20090319
  Receipt Date: 20090312
  Transmission Date: 20090719
  Serious: Yes (Hospitalization, Disabling, Other)
  Sender: FDA-Public Use
  Company Number: DE-ABBOTT-04P-062-0259580-02

PATIENT
  Sex: Male
  Weight: 63 kg

DRUGS (9)
  1. HUMIRA (LEAD IN) [Suspect]
     Indication: RHEUMATOID ARTHRITIS
     Dosage: N/A
  2. HUMIRA [Concomitant]
     Indication: RHEUMATOID ARTHRITIS
     Route: 058
     Dates: start: 20031125, end: 20031224
  3. FOLSAN [Concomitant]
     Indication: DRUG USE FOR UNKNOWN INDICATION
     Dosage: 10 MG
     Dates: start: 20020901
  4. BEXTRA [Concomitant]
     Indication: RHEUMATOID ARTHRITIS
     Dates: start: 20030622
  5. SORTIS 20 [Concomitant]
     Indication: HYPOCHOLESTEROLAEMIA
     Dates: start: 19980101
  6. DOSS [Concomitant]
     Indication: OSTEOPOROSIS PROPHYLAXIS
     Dates: start: 20020101
  7. DILTIAZEM [Concomitant]
     Indication: ATRIAL FIBRILLATION
     Dates: start: 20010101
  8. MARCUMAR [Concomitant]
     Indication: ATRIAL FIBRILLATION
     Dates: start: 20020801
  9. METHOTREXATE SODIUM [Concomitant]
     Indication: RHEUMATOID ARTHRITIS
     Dosage: 15 MG
     Dates: start: 20020901

REACTIONS (2)
  - ARTHRITIS BACTERIAL [None]
  - NECROTISING FASCIITIS [None]
